FAERS Safety Report 23175995 (Version 2)
Quarter: 2023Q4

REPORT INFORMATION
  Report Type: Spontaneous
  Country: JP (occurrence: JP)
  Receive Date: 20231113
  Receipt Date: 20231219
  Transmission Date: 20240110
  Serious: Yes (Hospitalization, Other)
  Sender: FDA-Public Use
  Company Number: JP-MSD-M2023-47550

PATIENT
  Age: 72 Year
  Sex: Male

DRUGS (1)
  1. KEYTRUDA [Suspect]
     Active Substance: PEMBROLIZUMAB
     Indication: Malignant melanoma
     Dosage: 200 MILLIGRAM, Q3W
     Route: 041
     Dates: start: 20230616

REACTIONS (6)
  - Aspartate aminotransferase increased [Unknown]
  - Cytomegalovirus enterocolitis [Recovering/Resolving]
  - Pneumatosis intestinalis [Unknown]
  - Myasthenia gravis [Recovering/Resolving]
  - Blood creatine phosphokinase increased [Unknown]
  - Intestinal perforation [Unknown]

NARRATIVE: CASE EVENT DATE: 20230713
